FAERS Safety Report 9456755 (Version 1)
Quarter: 2013Q3

REPORT INFORMATION
  Report Type: Spontaneous
  Country: US (occurrence: US)
  Receive Date: 20130813
  Receipt Date: 20130813
  Transmission Date: 20140515
  Serious: No
  Sender: FDA-Public Use
  Company Number: US-TEVA-425430USA

PATIENT
  Age: 10 Year
  Sex: Female
  Weight: 22.7 kg

DRUGS (1)
  1. QVAR [Suspect]
     Indication: ASTHMA
     Dates: start: 20130727, end: 20130804

REACTIONS (2)
  - Headache [Unknown]
  - Dizziness [Unknown]
